FAERS Safety Report 8081770-0 (Version None)
Quarter: 2012Q1

REPORT INFORMATION
  Report Type: 
  Country: None (occurrence: None)
  Receive Date: 20120130
  Receipt Date: 20120125
  Transmission Date: 20120608
  Serious: Yes (Life-Threatening, Hospitalization, Other)
  Sender: FDA-Public Use
  Company Number: GB-ASTRAZENECA-2011SE41225

PATIENT
  Age: 47 Year
  Sex: Male
  Weight: 91.6 kg

DRUGS (7)
  1. SUNITINIB MALATE [Suspect]
     Indication: RENAL CELL CARCINOMA
     Route: 048
     Dates: start: 20060113, end: 20060125
  2. ZOPICLONE [Concomitant]
     Dates: start: 20050101
  3. GABAPENTIN [Concomitant]
     Indication: ABDOMINAL PAIN UPPER
     Dates: start: 20051214
  4. PROZAC [Concomitant]
     Dates: start: 20050101
  5. PROPRANOLOL [Suspect]
     Route: 048
     Dates: start: 20051214, end: 20060126
  6. ORAMORPH SR [Concomitant]
     Indication: ABDOMINAL PAIN UPPER
     Dates: start: 20030101
  7. MORPHINE [Concomitant]
     Indication: ABDOMINAL PAIN UPPER
     Dates: start: 20030101

REACTIONS (17)
  - RESUSCITATION [None]
  - ELECTROCARDIOGRAM QT PROLONGED [None]
  - CARDIAC ARREST [None]
  - ABDOMINAL PAIN [None]
  - BLOOD PRESSURE FLUCTUATION [None]
  - PARTIAL SEIZURES [None]
  - VENTRICULAR TACHYCARDIA [None]
  - CARDIAC ENZYMES INCREASED [None]
  - HAEMATEMESIS [None]
  - HYPOCALCAEMIA [None]
  - VOMITING [None]
  - TORSADE DE POINTES [None]
  - PERICARDIAL EFFUSION [None]
  - INTRACRANIAL PRESSURE INCREASED [None]
  - PUPILS UNEQUAL [None]
  - DIARRHOEA [None]
  - NAUSEA [None]
